FAERS Safety Report 9344146 (Version 2)
Quarter: 2013Q2

REPORT INFORMATION
  Report Type: Spontaneous
  Country: US (occurrence: None)
  Receive Date: 20130610
  Receipt Date: 20130626
  Transmission Date: 20140414
  Serious: Yes (Death)
  Sender: FDA-Public Use
  Company Number: JPI-P-032674

PATIENT
  Age: 60 Year
  Sex: Female

DRUGS (1)
  1. XYREM (500 MG/ML SOLUTION)(SODIUM OXYBATE) [Suspect]
     Indication: FIBROMYALGIA
     Dosage: 2.25 GM, 2 IN 1 DAY, ORAL.
     Route: 048
     Dates: start: 20130418

REACTIONS (2)
  - Death [None]
  - Myocardial infarction [None]
